FAERS Safety Report 8852651 (Version 1)
Quarter: 2012Q4

REPORT INFORMATION
  Report Type: 
  Country: IT (occurrence: IT)
  Receive Date: 20121022
  Receipt Date: 20121022
  Transmission Date: 20130627
  Serious: Yes (Death)
  Sender: FDA-Public Use
  Company Number: IT-PFIZER INC-2012254800

PATIENT
  Age: 26 Year
  Sex: Male

DRUGS (1)
  1. LIDOCAINE HCL [Suspect]
     Dosage: UNK
     Route: 042

REACTIONS (2)
  - Overdose [Fatal]
  - Toxicity to various agents [Fatal]
